FAERS Safety Report 13629040 (Version 1)
Quarter: 2017Q2

REPORT INFORMATION
  Report Type: Report from Study
  Country: US (occurrence: US)
  Receive Date: 20170608
  Receipt Date: 20170608
  Transmission Date: 20170830
  Serious: Yes (Death)
  Sender: FDA-Public Use
  Company Number: US-KADMON PHARMACEUTICALS, LLC-KAD201408-000912

PATIENT
  Age: 62 Year
  Sex: Female

DRUGS (2)
  1. RIBAVIRIN. [Suspect]
     Active Substance: RIBAVIRIN
     Indication: CHORIOMENINGITIS LYMPHOCYTIC
     Route: 048
  2. IMMUNOGLOBULIN (IVIG) [Suspect]
     Active Substance: HUMAN IMMUNOGLOBULIN G
     Indication: CHORIOMENINGITIS LYMPHOCYTIC

REACTIONS (6)
  - Multiple organ dysfunction syndrome [Fatal]
  - Acute lung injury [None]
  - Hepatic necrosis [None]
  - Adrenal haematoma [None]
  - Subarachnoid haemorrhage [None]
  - Product use in unapproved indication [Unknown]
